FAERS Safety Report 6446019-0 (Version None)
Quarter: 2009Q4

REPORT INFORMATION
  Report Type: 
  Country: None (occurrence: None)
  Receive Date: 20091119
  Receipt Date: 20091002
  Transmission Date: 20100525
  Serious: No
  Sender: FDA-Public Use
  Company Number: A0800977A

PATIENT
  Age: 54 Year
  Sex: Female

DRUGS (1)
  1. BUPROPION HYDROCHLORIDE [Suspect]
     Dosage: 100MG TWICE PER DAY
     Dates: start: 20060101

REACTIONS (3)
  - ABDOMINAL PAIN UPPER [None]
  - DECREASED APPETITE [None]
  - PRODUCT QUALITY ISSUE [None]
